FAERS Safety Report 16441122 (Version 1)
Quarter: 2019Q3

REPORT INFORMATION
  Report Type: Spontaneous
  Country: US (occurrence: US)
  Receive Date: 20190617
  Receipt Date: 20190617
  Transmission Date: 20191004
  Serious: Yes (Other)
  Sender: FDA-Public Use
  Company Number: None

PATIENT
  Age: 69 Year
  Sex: Female
  Weight: 76.23 kg

DRUGS (19)
  1. IBRANCE [Suspect]
     Active Substance: PALBOCICLIB
     Indication: BREAST CANCER FEMALE
     Route: 048
     Dates: start: 20190509
  2. VITAMIN B6 [Concomitant]
     Active Substance: PYRIDOXINE HYDROCHLORIDE
  3. LETROZOLE. [Concomitant]
     Active Substance: LETROZOLE
  4. FERROUS SULFATE. [Concomitant]
     Active Substance: FERROUS SULFATE
  5. NASACORT [Concomitant]
     Active Substance: TRIAMCINOLONE ACETONIDE
  6. VITAMIN B COMPLEX-C [Concomitant]
  7. LORATADINE D [Concomitant]
     Active Substance: LORATADINE\PSEUDOEPHEDRINE SULFATE
  8. AMARYL [Concomitant]
     Active Substance: GLIMEPIRIDE
  9. VITAMIN C [Concomitant]
     Active Substance: ASCORBIC ACID
  10. POTASSIUM GLUCONATE [Concomitant]
     Active Substance: POTASSIUM GLUCONATE
  11. MULTIVITAMIN [Concomitant]
     Active Substance: VITAMINS
  12. VITAMIN D3 [Concomitant]
     Active Substance: CHOLECALCIFEROL
  13. BEVESPI AEROSPHERE [Concomitant]
     Active Substance: FORMOTEROL FUMARATE\GLYCOPYRROLATE
  14. FISH OIL [Concomitant]
     Active Substance: FISH OIL
  15. VITAMIN E BLEND [Concomitant]
  16. EFFEXOR XR [Concomitant]
     Active Substance: VENLAFAXINE HYDROCHLORIDE
  17. ALBUTEROL HFA [Concomitant]
     Active Substance: ALBUTEROL SULFATE
  18. SIMVASTATIN. [Concomitant]
     Active Substance: SIMVASTATIN
  19. KELP [Concomitant]
     Active Substance: KELP

REACTIONS (1)
  - Epistaxis [None]

NARRATIVE: CASE EVENT DATE: 20190617
